FAERS Safety Report 8543731-4 (Version None)
Quarter: 2012Q2

REPORT INFORMATION
  Report Type: 
  Country: None (occurrence: None)
  Receive Date: 20120416
  Receipt Date: 20100121
  Transmission Date: 20120825
  Serious: Yes (Hospitalization)
  Sender: FDA-Public Use
  Company Number: PHEH2009US09803

PATIENT
  Age: 81 Year
  Sex: Female
  Weight: 49.9 kg

DRUGS (7)
  1. DIGOXIN [Concomitant]
  2. LIPITOR [Concomitant]
  3. COREG [Concomitant]
  4. LEXAPRO [Concomitant]
  5. SEXELON PATCH (RIVASTIGMINE) TRANS-THERAPEUTIC-SYSTEM [Suspect]
     Indication: DEMENTIA
     Dosage: 4.6 MG, QD, TRANSDERMAL, 9.5, MG, QD, TRANSDERMAL
     Route: 062
     Dates: start: 20071201, end: 20081101
  6. SEXELON PATCH (RIVASTIGMINE) TRANS-THERAPEUTIC-SYSTEM [Suspect]
     Indication: DEMENTIA
     Dosage: 4.6 MG, QD, TRANSDERMAL, 9.5, MG, QD, TRANSDERMAL
     Route: 062
     Dates: start: 20091001
  7. SEXELON PATCH (RIVASTIGMINE) TRANS-THERAPEUTIC-SYSTEM [Suspect]
     Indication: DEMENTIA
     Dosage: 4.6 MG, QD, TRANSDERMAL, 9.5, MG, QD, TRANSDERMAL
     Route: 062
     Dates: start: 20081101, end: 20091001

REACTIONS (7)
  - WEIGHT DECREASED [None]
  - CONFUSIONAL STATE [None]
  - VOMITING [None]
  - FLANK PAIN [None]
  - DEHYDRATION [None]
  - DIARRHOEA [None]
  - NAUSEA [None]
